FAERS Safety Report 4378877-8 (Version None)
Quarter: 2004Q2

REPORT INFORMATION
  Report Type: 
  Country: None (occurrence: None)
  Receive Date: 20040601
  Receipt Date: 20040202
  Transmission Date: 20050107
  Serious: No
  Sender: FDA-Public Use
  Company Number: WAES0402USA00069

PATIENT
  Age: 80 Year
  Sex: Female
  Weight: 48.5349 kg

DRUGS (2)
  1. ZETIA [Suspect]
     Indication: BLOOD CHOLESTEROL INCREASED
     Dosage: 10 MG/DAILY/PO
     Route: 048
     Dates: start: 20030702, end: 20030826
  2. ZETIA [Suspect]
     Indication: BLOOD CHOLESTEROL INCREASED
     Dosage: 10 MG/DAILY/PO
     Route: 048
     Dates: start: 20030108

REACTIONS (5)
  - ASTHENIA [None]
  - DYSPEPSIA [None]
  - FATIGUE [None]
  - MYALGIA [None]
  - RASH [None]
